FAERS Safety Report 24224577 (Version 1)
Quarter: 2024Q3

REPORT INFORMATION
  Report Type: Spontaneous
  Country: US (occurrence: US)
  Receive Date: 20240819
  Receipt Date: 20240819
  Transmission Date: 20241017
  Serious: No
  Sender: BRISTOL MYERS SQUIBB
  Company Number: US-BRISTOL-MYERS SQUIBB COMPANY-2024-127405

PATIENT
  Age: 90 Year
  Sex: Female
  Weight: 50.8 kg

DRUGS (4)
  1. ELIQUIS [Suspect]
     Active Substance: APIXABAN
     Indication: Deep vein thrombosis
     Dosage: PATIENT TOOK 2 TABLETS OF 5MG IN THE MORNING AND 2 TABLET OF 5MG IN THE EVENING FOR 14 DAYS
     Route: 048
     Dates: start: 20240804
  2. LEVOTHYROXINE [Concomitant]
     Active Substance: LEVOTHYROXINE\LEVOTHYROXINE SODIUM
     Indication: Product used for unknown indication
  3. ALENDRONATE [Concomitant]
     Active Substance: ALENDRONATE SODIUM
     Indication: Product used for unknown indication
  4. DIETARY SUPPLEMENT [Concomitant]
     Active Substance: DIETARY SUPPLEMENT
     Indication: Pain

REACTIONS (3)
  - Peripheral swelling [Unknown]
  - Headache [Unknown]
  - Off label use [Unknown]
